FAERS Safety Report 18547393 (Version 1)
Quarter: 2020Q4

REPORT INFORMATION
  Report Type: Spontaneous
  Country: DE (occurrence: DE)
  Receive Date: 20201126
  Receipt Date: 20201126
  Transmission Date: 20210114
  Serious: Yes (Hospitalization, Other)
  Sender: FDA-Public Use
  Company Number: DE-CELLTRION INC.-2020DE032688

PATIENT

DRUGS (10)
  1. AZATHIOPRIN [Suspect]
     Active Substance: AZATHIOPRINE
     Dosage: 100 MG, DAILY
  2. AZATHIOPRIN [Suspect]
     Active Substance: AZATHIOPRINE
     Dosage: 125 MG, DAILY
     Dates: end: 2020
  3. INFLIXIMAB PFIZER (UNKNOWN) [Suspect]
     Active Substance: INFLIXIMAB
     Dosage: UNK
     Dates: start: 2020
  4. AZATHIOPRIN [Suspect]
     Active Substance: AZATHIOPRINE
     Dosage: 50 MG, DAILY
     Dates: start: 1998
  5. MESALAZIN [Suspect]
     Active Substance: MESALAMINE
     Dosage: 2.4 G, DAILY
  6. INFLIXIMAB PFIZER (UNKNOWN) [Suspect]
     Active Substance: INFLIXIMAB
     Dosage: UNK, EVERY FOUR WEEKS
  7. INFLIXIMAB PFIZER (UNKNOWN) [Suspect]
     Active Substance: INFLIXIMAB
     Dosage: UNK
     Dates: start: 2012
  8. ADALIMUMAB [Suspect]
     Active Substance: ADALIMUMAB
     Dosage: UNK
  9. INFLIXIMAB PFIZER (UNKNOWN) [Suspect]
     Active Substance: INFLIXIMAB
     Dosage: UNK, EVERY 8 WEEKS
     Dates: end: 2016
  10. VEDOLIZUMAB [Suspect]
     Active Substance: VEDOLIZUMAB
     Dosage: UNK
     Route: 042

REACTIONS (13)
  - Diarrhoea [Recovering/Resolving]
  - Basal cell carcinoma [Unknown]
  - Abdominal pain lower [Recovering/Resolving]
  - Clostridium difficile infection [Recovering/Resolving]
  - Urinary tract infection [Recovering/Resolving]
  - Rash [Recovering/Resolving]
  - Large intestinal stenosis [Recovering/Resolving]
  - Cholecystitis acute [Recovering/Resolving]
  - Faecal calprotectin increased [Recovering/Resolving]
  - Vomiting [Recovering/Resolving]
  - Gastrointestinal inflammation [Recovering/Resolving]
  - Intestinal dilatation [Recovering/Resolving]
  - Off label use [Unknown]

NARRATIVE: CASE EVENT DATE: 2014
